FAERS Safety Report 8713889 (Version 5)
Quarter: 2012Q4

REPORT INFORMATION
  Report Type: 
  Country: US (occurrence: US)
  Receive Date: 20120808
  Receipt Date: 20121121
  Transmission Date: 20130627
  Serious: Yes (Other)
  Sender: FDA-Public Use
  Company Number: US-PFIZER INC-2012190868

PATIENT
  Sex: Female

DRUGS (4)
  1. ACCUPRIL [Suspect]
     Dosage: UNK
  2. CELEBREX [Suspect]
     Dosage: UNK
  3. DETROL LA [Suspect]
     Dosage: UNK
  4. ZOLOFT [Suspect]
     Dosage: UNK

REACTIONS (3)
  - Hypoacusis [Unknown]
  - Arthritis [Unknown]
  - Spinal osteoarthritis [Unknown]
